FAERS Safety Report 17070624 (Version 1)
Quarter: 2019Q4

REPORT INFORMATION
  Report Type: Spontaneous
  Country: CN (occurrence: CN)
  Receive Date: 20191125
  Receipt Date: 20191125
  Transmission Date: 20200122
  Serious: Yes (Hospitalization, Other)
  Sender: FDA-Public Use
  Company Number: CN-PFIZER INC-2019501105

PATIENT
  Age: 57 Year
  Sex: Male
  Weight: 71.6 kg

DRUGS (5)
  1. PREDNISONE [PREDNISONE ACETATE] [Suspect]
     Active Substance: PREDNISONE ACETATE
     Indication: DERMATITIS ALLERGIC
  2. NORMAL SALINE [Concomitant]
     Active Substance: SODIUM CHLORIDE
     Dosage: 20 ML, DAILY
     Route: 042
     Dates: start: 20171117, end: 20171123
  3. SOLU-MEDROL [Suspect]
     Active Substance: METHYLPREDNISOLONE SODIUM SUCCINATE
     Indication: DERMATITIS ALLERGIC
  4. SOLU-MEDROL [Suspect]
     Active Substance: METHYLPREDNISOLONE SODIUM SUCCINATE
     Indication: HYPERSENSITIVITY
     Dosage: 40 MG, 1X/DAY
     Route: 042
     Dates: start: 20171117, end: 20171123
  5. PREDNISONE [PREDNISONE ACETATE] [Suspect]
     Active Substance: PREDNISONE ACETATE
     Indication: HYPERSENSITIVITY
     Dosage: 50 MG, 1X/DAY
     Route: 048
     Dates: start: 20171123, end: 20171223

REACTIONS (4)
  - Arthralgia [Unknown]
  - Dysstasia [Unknown]
  - Osteonecrosis [Recovering/Resolving]
  - Gait inability [Unknown]

NARRATIVE: CASE EVENT DATE: 201812
